FAERS Safety Report 25185688 (Version 1)
Quarter: 2025Q2

REPORT INFORMATION
  Report Type: Other
  Country: IT (occurrence: IT)
  Receive Date: 20250410
  Receipt Date: 20250410
  Transmission Date: 20250717
  Serious: Yes (Hospitalization, Other)
  Sender: B BRAUN
  Company Number: IT-B.Braun Medical Inc.-2174636

PATIENT
  Age: 51 Year
  Sex: Female

DRUGS (1)
  1. ACETAMINOPHEN [Suspect]
     Active Substance: ACETAMINOPHEN

REACTIONS (6)
  - Liver injury [Recovered/Resolved]
  - Anaemia [Recovered/Resolved]
  - Metabolic acidosis [Recovered/Resolved]
  - Overdose [Recovered/Resolved]
  - Renal tubular necrosis [Recovered/Resolved]
  - Thrombocytopenia [Recovered/Resolved]
